FAERS Safety Report 21581343 (Version 1)
Quarter: 2022Q4

REPORT INFORMATION
  Report Type: Spontaneous
  Country: US (occurrence: US)
  Receive Date: 20221111
  Receipt Date: 20221111
  Transmission Date: 20230112
  Serious: Yes (Other)
  Sender: FDA-Public Use
  Company Number: US-QILU PHARMACEUTICAL (HAINAN) CO., LTD.-QLH-000106-2022

PATIENT
  Age: 57 Year
  Sex: Male

DRUGS (7)
  1. OXALIPLATIN [Suspect]
     Active Substance: OXALIPLATIN
     Indication: Oesophageal squamous cell carcinoma metastatic
     Dosage: UNK, ONE CYCLE
     Route: 065
     Dates: end: 201701
  2. OXALIPLATIN [Suspect]
     Active Substance: OXALIPLATIN
     Indication: Recurrent cancer
  3. OXALIPLATIN [Suspect]
     Active Substance: OXALIPLATIN
     Indication: Off label use
  4. EPIRUBICIN [Suspect]
     Active Substance: EPIRUBICIN
     Indication: Oesophageal squamous cell carcinoma metastatic
     Dosage: UNK, ONE CYCLE
     Route: 065
     Dates: end: 201701
  5. EPIRUBICIN [Suspect]
     Active Substance: EPIRUBICIN
     Indication: Recurrent cancer
  6. CAPECITABINE [Suspect]
     Active Substance: CAPECITABINE
     Indication: Oesophageal squamous cell carcinoma metastatic
     Dosage: UNK, ONE CYCLE
     Route: 065
     Dates: end: 201701
  7. CAPECITABINE [Suspect]
     Active Substance: CAPECITABINE
     Indication: Recurrent cancer

REACTIONS (3)
  - Pancytopenia [Unknown]
  - Hypertransaminasaemia [Unknown]
  - Off label use [Recovered/Resolved]

NARRATIVE: CASE EVENT DATE: 20170101
